FAERS Safety Report 7130574-1 (Version None)
Quarter: 2010Q4

REPORT INFORMATION
  Report Type: 
  Country: None (occurrence: None)
  Receive Date: 20101101
  Receipt Date: 20100818
  Transmission Date: 20110411
  Serious: No
  Sender: FDA-Public Use
  Company Number: 2010-11243

PATIENT
  Age: 60 Year
  Sex: Male
  Weight: 90.7 kg

DRUGS (3)
  1. RAPAFLO [Suspect]
     Indication: PROSTATITIS
     Dosage: 8 MG, DAILY, ORAL
     Route: 048
     Dates: start: 20100811
  2. CIPROFLOXACIN [Concomitant]
  3. PHENAZOPYRIDINE [Concomitant]

REACTIONS (3)
  - MUSCLE SPASMS [None]
  - OFF LABEL USE [None]
  - SINUS CONGESTION [None]
